FAERS Safety Report 4308294-8 (Version None)
Quarter: 2004Q1

REPORT INFORMATION
  Report Type: 
  Country: None (occurrence: None)
  Receive Date: 20040301
  Receipt Date: 20031113
  Transmission Date: 20041129
  Serious: Yes (Other)
  Sender: FDA-Public Use
  Company Number: US-BRISTOL-MYERS SQUIBB COMPANY-12434767

PATIENT
  Age: 66 Year
  Sex: Female
  Weight: 77 kg

DRUGS (4)
  1. GLUCOPHAGE [Suspect]
     Indication: DIABETES MELLITUS
     Route: 048
  2. ACTOS [Concomitant]
  3. AVANDIA [Concomitant]
  4. ZESTRIL [Concomitant]

REACTIONS (5)
  - BLOOD GLUCOSE ABNORMAL [None]
  - DYSPNOEA [None]
  - NAUSEA [None]
  - PALPITATIONS [None]
  - VOMITING [None]
